FAERS Safety Report 10019433 (Version 1)
Quarter: 2014Q1

REPORT INFORMATION
  Report Type: Spontaneous
  Country: FR (occurrence: FR)
  Receive Date: 20140318
  Receipt Date: 20140318
  Transmission Date: 20141002
  Serious: Yes (Hospitalization)
  Sender: FDA-Public Use
  Company Number: FR-ASTRAZENECA-2014SE17503

PATIENT
  Age: 65 Year
  Sex: Female

DRUGS (6)
  1. INEXIUM [Suspect]
     Dosage: UNK, UNK
     Route: 048
     Dates: start: 20140214
  2. CUBICIN [Suspect]
     Indication: BRAIN ABSCESS
     Dosage: UNK UNK, UNK
     Route: 042
     Dates: start: 20140227
  3. CUBICIN [Suspect]
     Indication: OFF LABEL USE
     Dosage: UNK UNK, UNK
     Route: 042
     Dates: start: 20140227
  4. KEPPRA [Suspect]
     Dosage: UNK, UNK
     Route: 065
     Dates: start: 20140213, end: 20140226
  5. VANCOMYCIN [Suspect]
     Indication: BRAIN ABSCESS
     Dosage: UNK UNK, UNK
     Route: 042
     Dates: start: 20140213, end: 20140226
  6. TIENAM [Suspect]
     Indication: BRAIN ABSCESS
     Dosage: UNK UNK, UNK
     Route: 042
     Dates: start: 20140220

REACTIONS (2)
  - Blood potassium decreased [Unknown]
  - Hepatocellular injury [Not Recovered/Not Resolved]
